FAERS Safety Report 20066618 (Version 2)
Quarter: 2023Q4

REPORT INFORMATION
  Report Type: Spontaneous
  Country: JP (occurrence: JP)
  Receive Date: 20211115
  Receipt Date: 20231219
  Transmission Date: 20240110
  Serious: Yes (Other)
  Sender: FDA-Public Use
  Company Number: JP-ALKEM LABORATORIES LIMITED-JP-ALKEM-2021-05376

PATIENT
  Age: 80 Year
  Sex: Female

DRUGS (1)
  1. PREGABALIN [Suspect]
     Active Substance: PREGABALIN
     Indication: Product used for unknown indication
     Dosage: 375 MILLIGRAM, QD
     Route: 065

REACTIONS (4)
  - Drug withdrawal syndrome [Unknown]
  - Delirium [Unknown]
  - Encephalopathy [Unknown]
  - Oedema [Unknown]
